FAERS Safety Report 20377007 (Version 1)
Quarter: 2022Q1

REPORT INFORMATION
  Report Type: Spontaneous
  Country: NO (occurrence: NO)
  Receive Date: 20220125
  Receipt Date: 20220125
  Transmission Date: 20220423
  Serious: Yes (Hospitalization)
  Sender: FDA-Public Use
  Company Number: None

PATIENT
  Sex: Male

DRUGS (2)
  1. CARIPRAZINE HYDROCHLORIDE [Interacting]
     Active Substance: CARIPRAZINE HYDROCHLORIDE
     Indication: Schizophrenia
     Dosage: 6 MG/ 24 H
     Route: 048
     Dates: start: 20200402, end: 20210104
  2. CLOZAPINE [Interacting]
     Active Substance: CLOZAPINE
     Indication: Schizophrenia
     Dosage: 300 MG/24 H
     Route: 048
     Dates: start: 20211028, end: 20211230

REACTIONS (3)
  - General physical health deterioration [Unknown]
  - Agranulocytosis [Unknown]
  - Oropharyngeal pain [Unknown]

NARRATIVE: CASE EVENT DATE: 20211116
